FAERS Safety Report 5346860-1 (Version None)
Quarter: 2007Q2

REPORT INFORMATION
  Report Type: 
  Country: None (occurrence: None)
  Receive Date: 20070605
  Receipt Date: 20070524
  Transmission Date: 20071010
  Serious: Yes (Life-Threatening, Hospitalization)
  Sender: FDA-Public Use
  Company Number: US-PFIZER INC-2006003507

PATIENT
  Sex: Female
  Weight: 70.3 kg

DRUGS (9)
  1. AG-013,736 [Suspect]
     Indication: NON-SMALL CELL LUNG CANCER
     Route: 048
  2. MINOXIDIL [Suspect]
     Route: 048
     Dates: start: 20051222, end: 20060102
  3. TOPROL-XL [Concomitant]
     Indication: HYPERTENSION
     Route: 048
     Dates: start: 20051123, end: 20060108
  4. CALAN [Concomitant]
     Indication: HYPERTENSION
     Route: 048
     Dates: start: 20051222, end: 20060108
  5. COMPAZINE [Concomitant]
     Route: 048
  6. CELEBREX [Concomitant]
     Route: 048
     Dates: start: 20050613, end: 20050101
  7. OXYCODONE HCL [Concomitant]
     Route: 048
  8. POTASSIUM ACETATE [Concomitant]
     Route: 048
  9. PREMARIN [Concomitant]
     Route: 048

REACTIONS (1)
  - RENAL FAILURE ACUTE [None]
